FAERS Safety Report 6875031-2 (Version None)
Quarter: 2010Q3

REPORT INFORMATION
  Report Type: 
  Country: None (occurrence: None)
  Receive Date: 20100727
  Receipt Date: 20100717
  Transmission Date: 20110219
  Serious: Yes (Hospitalization)
  Sender: FDA-Public Use
  Company Number: US-AMGEN-KDL425262

PATIENT
  Sex: Female

DRUGS (1)
  1. ENBREL [Suspect]
     Indication: RHEUMATOID ARTHRITIS
     Route: 058
     Dates: start: 20000101

REACTIONS (4)
  - CERVICAL VERTEBRAL FRACTURE [None]
  - FALL [None]
  - INFLUENZA [None]
  - UPPER LIMB FRACTURE [None]
